FAERS Safety Report 7093805-2 (Version None)
Quarter: 2010Q4

REPORT INFORMATION
  Report Type: 
  Country: None (occurrence: None)
  Receive Date: 20101110
  Receipt Date: 20101101
  Transmission Date: 20110411
  Serious: No
  Sender: FDA-Public Use
  Company Number: US-B.I. PHARMACEUTICALS,INC./RIDGEFIELD-2010-BP-11196BP

PATIENT
  Age: 58 Year
  Sex: Female

DRUGS (23)
  1. SPIRIVA [Suspect]
     Indication: ASTHMA
     Dosage: 18 MCG
     Route: 055
     Dates: start: 20101003
  2. SPIRIVA [Suspect]
     Indication: DYSPNOEA
  3. SPIRIVA [Suspect]
     Indication: CHEST DISCOMFORT
  4. LUMIGAN [Concomitant]
  5. SYMBICORT [Concomitant]
     Dosage: 4 PUF
  6. SINGULAIR [Concomitant]
     Route: 048
  7. FUROSEMIDE [Concomitant]
  8. IBUPROTRIUM [Concomitant]
  9. ALBUTEROL [Concomitant]
  10. SODIUM BICARBONATE [Concomitant]
     Dosage: 2200 MG
  11. PROTONIX [Concomitant]
     Dosage: 80 MG
  12. PREDNISONE [Concomitant]
     Dosage: 10 MG
  13. PROMETRIUM [Concomitant]
     Dosage: 200 MG
     Route: 048
  14. DETROL LA [Concomitant]
     Dosage: 4 MG
     Route: 048
  15. CLOZAPINE [Concomitant]
     Dosage: 300 MG
     Route: 048
  16. LITHIUM [Concomitant]
     Dosage: 900 MG
  17. PRISTIQ [Concomitant]
  18. LAMICTAL [Concomitant]
     Dosage: 200 MG
  19. METFORMIN HCL [Concomitant]
  20. CALCIUM [Concomitant]
  21. MUTLIVITAMIN [Concomitant]
  22. VITAMIN B COMPLEX CAP [Concomitant]
  23. CHLOROPHYL [Concomitant]

REACTIONS (3)
  - ANXIETY [None]
  - DEPRESSION [None]
  - FATIGUE [None]
